FAERS Safety Report 25168956 (Version 1)
Quarter: 2025Q2

REPORT INFORMATION
  Report Type: Spontaneous
  Country: CA (occurrence: CA)
  Receive Date: 20250407
  Receipt Date: 20250407
  Transmission Date: 20250716
  Serious: Yes (Other)
  Sender: TAKEDA
  Company Number: CA-TAKEDA-2025TUS021886

PATIENT
  Age: 62 Year
  Sex: Female
  Weight: 68 kg

DRUGS (16)
  1. HUMAN C1-ESTERASE INHIBITOR [Suspect]
     Active Substance: HUMAN C1-ESTERASE INHIBITOR
     Indication: Prophylaxis
     Dosage: 4000 INTERNATIONAL UNIT, 3/WEEK
     Dates: start: 20240209, end: 20240923
  2. HUMAN C1-ESTERASE INHIBITOR [Suspect]
     Active Substance: HUMAN C1-ESTERASE INHIBITOR
     Indication: Angioedema
  3. HUMAN C1-ESTERASE INHIBITOR [Suspect]
     Active Substance: HUMAN C1-ESTERASE INHIBITOR
     Dosage: 2000 INTERNATIONAL UNIT, 3/WEEK
  4. ICATIBANT ACETATE [Concomitant]
     Active Substance: ICATIBANT ACETATE
  5. CROMOLYN SODIUM [Concomitant]
     Active Substance: CROMOLYN SODIUM
  6. RABEPRAZOLE [Concomitant]
     Active Substance: RABEPRAZOLE
  7. RANITIDINE HYDROCHLORIDE [Concomitant]
     Active Substance: RANITIDINE HYDROCHLORIDE
  8. Reactine [Concomitant]
  9. RISEDRONATE SODIUM [Concomitant]
     Active Substance: RISEDRONATE SODIUM
  10. SINGULAIR [Concomitant]
     Active Substance: MONTELUKAST SODIUM
  11. VENTOLIN [Concomitant]
     Active Substance: ALBUTEROL SULFATE
  12. PLAVIX [Concomitant]
     Active Substance: CLOPIDOGREL BISULFATE
  13. DOMPERIDONE MALEATE [Concomitant]
     Active Substance: DOMPERIDONE MALEATE
  14. BUDESONIDE [Concomitant]
     Active Substance: BUDESONIDE
  15. BOTOX [Concomitant]
     Active Substance: ONABOTULINUMTOXINA
     Indication: Bruxism
  16. BUDESONIDE\FORMOTEROL FUMARATE [Concomitant]
     Active Substance: BUDESONIDE\FORMOTEROL FUMARATE

REACTIONS (10)
  - Cerebrovascular accident [Unknown]
  - Hereditary angioedema [Unknown]
  - Blood pressure increased [Unknown]
  - Headache [Unknown]
  - Contusion [Unknown]
  - Therapy interrupted [Unknown]
  - Off label use [Unknown]
  - Hypertension [Unknown]
  - Drug hypersensitivity [Unknown]
  - Reaction to flavouring [Unknown]

NARRATIVE: CASE EVENT DATE: 20240209
